FAERS Safety Report 20602591 (Version 1)
Quarter: 2022Q1

REPORT INFORMATION
  Report Type: Spontaneous
  Country: US (occurrence: US)
  Receive Date: 20220316
  Receipt Date: 20220316
  Transmission Date: 20220423
  Serious: No
  Sender: FDA-Public Use
  Company Number: US-PFIZER INC-2019258949

PATIENT
  Age: 61 Year
  Sex: Female
  Weight: 113.37 kg

DRUGS (2)
  1. LYRICA [Suspect]
     Active Substance: PREGABALIN
     Indication: Diabetic neuropathy
     Dosage: 150 MG, 3X/DAY
     Route: 048
     Dates: start: 20161223
  2. LYRICA [Suspect]
     Active Substance: PREGABALIN
     Dosage: 150 MG, 3X/DAY
     Route: 048
     Dates: start: 20210429

REACTIONS (3)
  - Pain in extremity [Unknown]
  - Pain in extremity [Unknown]
  - Product dose omission issue [Unknown]
